FAERS Safety Report 8442013 (Version 8)
Quarter: 2014Q1

REPORT INFORMATION
  Report Type: Spontaneous
  Country: US (occurrence: US)
  Receive Date: 20120305
  Receipt Date: 20140121
  Transmission Date: 20141002
  Serious: Yes (Other)
  Sender: FDA-Public Use
  Company Number: US-PFIZER INC-2012054162

PATIENT
  Age: 54 Year
  Sex: Female

DRUGS (9)
  1. LYRICA [Suspect]
     Indication: NEUROPATHY PERIPHERAL
     Dosage: 150 MG, 2X/DAY
  2. METHADONE [Concomitant]
     Indication: NEUROPATHY PERIPHERAL
     Dosage: TWO- THREE TIMES DAILY
  3. ZANAFLEX [Concomitant]
     Dosage: 2 MG, UNK
  4. HYZAAR [Concomitant]
     Dosage: UNK
  5. METOPROLOL [Concomitant]
     Dosage: UNK
  6. COUMADIN [Concomitant]
     Dosage: UNK
  7. CLONAZEPAM [Concomitant]
     Dosage: UNK
  8. PRAVASTATIN [Concomitant]
     Dosage: UNK
  9. PERCOCET [Concomitant]
     Indication: BREAKTHROUGH PAIN
     Dosage: 5/325 EVERY DAY AS NEEDED

REACTIONS (3)
  - Clostridium difficile colitis [Unknown]
  - Withdrawal syndrome [Unknown]
  - Irritability [Unknown]
